FAERS Safety Report 22127297 (Version 1)
Quarter: 2023Q1

REPORT INFORMATION
  Report Type: Spontaneous
  Country: US (occurrence: US)
  Receive Date: 20230322
  Receipt Date: 20230322
  Transmission Date: 20230418
  Serious: No
  Sender: FDA-Public Use
  Company Number: US-ALLERGAN-2236855US

PATIENT
  Age: 49 Year
  Sex: Male

DRUGS (1)
  1. KYBELLA [Suspect]
     Active Substance: DEOXYCHOLIC ACID
     Indication: Lipolysis procedure
     Dosage: 4 ML, SINGLE
     Dates: start: 20220803, end: 20220803

REACTIONS (2)
  - Injection site rash [Not Recovered/Not Resolved]
  - Injection site swelling [Recovering/Resolving]
